FAERS Safety Report 4462021-2 (Version None)
Quarter: 2004Q3

REPORT INFORMATION
  Report Type: 
  Country: None (occurrence: None)
  Receive Date: 20040924
  Receipt Date: 20040924
  Transmission Date: 20050211
  Serious: Yes (Life-Threatening, Hospitalization)
  Sender: FDA-Public Use
  Company Number: None

PATIENT
  Age: 24 Year
  Sex: Male
  Weight: 66 kg

DRUGS (5)
  1. VANCOMYCIN [Suspect]
     Indication: MENINGITIS
     Dosage: 1200 Q 12 IV
     Route: 042
     Dates: start: 20040909, end: 20040910
  2. VANCOMYCIN [Suspect]
     Indication: PROPHYLAXIS
     Dosage: 1200 Q 12 IV
     Route: 042
     Dates: start: 20040909, end: 20040910
  3. CEFIPIME 1 GM [Suspect]
     Dosage: 2 GM Q 8 IV
     Route: 042
     Dates: start: 20040909, end: 20040911
  4. CUBICIN [Suspect]
     Dosage: 720 QD IV
     Route: 042
     Dates: start: 20040909, end: 20040911
  5. OXACILLIN [Suspect]
     Dosage: 2 GM Q4 IV
     Route: 042
     Dates: start: 20040909, end: 20040911

REACTIONS (3)
  - DIALYSIS [None]
  - RENAL FAILURE ACUTE [None]
  - RENAL TUBULAR NECROSIS [None]
